FAERS Safety Report 9377507 (Version 3)
Quarter: 2013Q3

REPORT INFORMATION
  Report Type: Report from Study
  Country: US (occurrence: US)
  Receive Date: 20130701
  Receipt Date: 20130828
  Transmission Date: 20140515
  Serious: Yes (Hospitalization)
  Sender: FDA-Public Use
  Company Number: PHEH2013US013877

PATIENT
  Age: 28 Year
  Sex: Male

DRUGS (3)
  1. MYFORTIC [Suspect]
     Indication: RENAL TRANSPLANT
     Dosage: 180 MG, 4 BID
     Route: 048
  2. MYFORTIC [Suspect]
     Dosage: 180 MG, 2 BID
     Route: 048
  3. TACROLIMUS [Concomitant]
     Indication: RENAL TRANSPLANT
     Dosage: 1 MG, 2 BID
     Route: 048

REACTIONS (1)
  - Cerebrovascular accident [Unknown]
